FAERS Safety Report 18232433 (Version 1)
Quarter: 2020Q3

REPORT INFORMATION
  Report Type: Spontaneous
  Country: US (occurrence: US)
  Receive Date: 20200904
  Receipt Date: 20200904
  Transmission Date: 20201103
  Serious: Yes (Hospitalization)
  Sender: FDA-Public Use
  Company Number: None

PATIENT
  Age: 91 Year
  Sex: Male

DRUGS (2)
  1. OXYBUTYNIN (OXYBUTYNIN CL 15MG TAB, SA) [Suspect]
     Active Substance: OXYBUTYNIN
     Indication: BLADDER DISORDER
     Dates: start: 20150320, end: 20200708
  2. CETIRIZINE (CETIRIZINE HCL 10 MG TAB) [Suspect]
     Active Substance: CETIRIZINE HYDROCHLORIDE
     Indication: HYPERSENSITIVITY
     Dates: start: 20191217, end: 20200708

REACTIONS (1)
  - Confusional state [None]

NARRATIVE: CASE EVENT DATE: 20200708
